FAERS Safety Report 8469454-8 (Version None)
Quarter: 2012Q2

REPORT INFORMATION
  Report Type: 
  Country: None (occurrence: None)
  Receive Date: 20120626
  Receipt Date: 20120419
  Transmission Date: 20120825
  Serious: No
  Sender: FDA-Public Use
  Company Number: US-ASTRAZENECA-2012SE25090

PATIENT
  Age: 51 Year
  Sex: Male

DRUGS (8)
  1. OMEPRAZOLE [Concomitant]
  2. CAPRELSA [Suspect]
     Indication: THYROID CANCER
     Route: 048
     Dates: start: 20120404
  3. GABAPENTIN [Concomitant]
  4. SYNTHROID [Concomitant]
  5. WELLBUTRIN [Concomitant]
  6. TOPAMAX [Concomitant]
  7. COMBIVENT [Concomitant]
  8. TRAZODONE HCL [Concomitant]

REACTIONS (4)
  - FATIGUE [None]
  - HYPERTENSION [None]
  - DIARRHOEA [None]
  - HOT FLUSH [None]
